FAERS Safety Report 12376883 (Version 3)
Quarter: 2016Q2

REPORT INFORMATION
  Report Type: Report from Study
  Country: US (occurrence: US)
  Receive Date: 20160517
  Receipt Date: 20160518
  Transmission Date: 20160815
  Serious: No
  Sender: FDA-Public Use
  Company Number: US-MALLINCKRODT-T201503159

PATIENT
  Sex: Male

DRUGS (1)
  1. REPOSITORY CORTICOTROPIN INJECTION [Suspect]
     Active Substance: CORTICOTROPIN
     Indication: FOCAL SEGMENTAL GLOMERULOSCLEROSIS
     Dosage: 80 UNITS TWICE WKLY
     Route: 030
     Dates: start: 20150420, end: 20151005

REACTIONS (12)
  - Weight decreased [Not Recovered/Not Resolved]
  - Dizziness [Unknown]
  - Oedema [Recovered/Resolved]
  - Respiratory symptom [Not Recovered/Not Resolved]
  - Feeling of relaxation [Unknown]
  - Protein total increased [Not Recovered/Not Resolved]
  - Headache [Unknown]
  - Inflammation [Unknown]
  - Weight increased [Recovering/Resolving]
  - Blood pressure increased [Unknown]
  - Blood creatine increased [Not Recovered/Not Resolved]
  - Blood glucose increased [Unknown]

NARRATIVE: CASE EVENT DATE: 2015
